FAERS Safety Report 10167653 (Version 1)
Quarter: 2014Q2

REPORT INFORMATION
  Report Type: Report from Study
  Country: US (occurrence: US)
  Receive Date: 20140512
  Receipt Date: 20140512
  Transmission Date: 20141212
  Serious: No
  Sender: FDA-Public Use
  Company Number: PHEH2014US009117

PATIENT
  Sex: Female

DRUGS (8)
  1. TASIGNA [Suspect]
     Indication: CHRONIC MYELOID LEUKAEMIA
     Dosage: 300 MG, BID
     Route: 048
     Dates: start: 20140328
  2. SLOW-MAG [Concomitant]
     Dosage: UNK UKN, UNK
  3. LORAZEPAM [Concomitant]
     Dosage: UNK UKN, UNK
  4. VICODIN [Concomitant]
     Dosage: UNK UKN, UNK
  5. LISINOPRIL [Concomitant]
     Dosage: UNK UKN, UNK
  6. OMEPRAZOLE [Concomitant]
     Dosage: UNK UKN, UNK
  7. LOSARTAN [Concomitant]
     Dosage: UNK UKN, UNK
  8. HYDROCODONE/ACETAMINOPHEN [Concomitant]
     Dosage: UNK UKN, UNK

REACTIONS (1)
  - Discomfort [Unknown]
